FAERS Safety Report 4469992-9 (Version None)
Quarter: 2004Q3

REPORT INFORMATION
  Report Type: 
  Country: None (occurrence: None)
  Receive Date: 20040917
  Receipt Date: 20040720
  Transmission Date: 20050211
  Serious: Yes (Other)
  Sender: FDA-Public Use
  Company Number: 2004045892

PATIENT
  Age: 64 Year
  Sex: Male
  Weight: 70.3075 kg

DRUGS (3)
  1. VFEND [Suspect]
     Indication: ASPERGILLOSIS
     Dosage: 1 IN 1 D, ORAL
     Route: 048
     Dates: start: 20021201, end: 20040101
  2. MEGACE [Concomitant]
  3. ASPIRIN [Concomitant]

REACTIONS (3)
  - AGEUSIA [None]
  - ANOREXIA [None]
  - PNEUMONIA ASPERGILLUS [None]
